FAERS Safety Report 23037417 (Version 1)
Quarter: 2023Q4

REPORT INFORMATION
  Report Type: Report from Study
  Country: SE (occurrence: SE)
  Receive Date: 20231006
  Receipt Date: 20231006
  Transmission Date: 20240110
  Serious: Yes (Death, Hospitalization, Other)
  Sender: FDA-Public Use
  Company Number: SE-ASTELLAS-2023US029607

PATIENT
  Age: 65 Year
  Sex: Male

DRUGS (1)
  1. TACROLIMUS [Suspect]
     Active Substance: TACROLIMUS
     Indication: Product used for unknown indication
     Dosage: UNK UNK, UNKNOWN FREQ.
     Route: 065
     Dates: start: 20170402

REACTIONS (18)
  - Respiratory failure [Fatal]
  - Condition aggravated [Fatal]
  - Respiratory failure [Recovered/Resolved with Sequelae]
  - Viral infection [Recovered/Resolved with Sequelae]
  - Viral infection [Not Recovered/Not Resolved]
  - Bacterial infection [Recovered/Resolved]
  - Fungal infection [Recovered/Resolved]
  - Bacterial infection [Not Recovered/Not Resolved]
  - Infection [Recovered/Resolved with Sequelae]
  - Herpes virus infection [Recovered/Resolved]
  - Renal impairment [Recovered/Resolved with Sequelae]
  - Ileus [Recovered/Resolved with Sequelae]
  - Transplant rejection [Recovered/Resolved]
  - Transplant dysfunction [Recovered/Resolved]
  - Oedema [Recovered/Resolved]
  - Respiratory disorder [Recovered/Resolved with Sequelae]
  - Dysphagia [Not Recovered/Not Resolved]
  - Bronchostenosis [Recovered/Resolved]

NARRATIVE: CASE EVENT DATE: 20170403
